FAERS Safety Report 4687049-9 (Version None)
Quarter: 2005Q2

REPORT INFORMATION
  Report Type: 
  Country: None (occurrence: None)
  Receive Date: 20050608
  Receipt Date: 20050531
  Transmission Date: 20051028
  Serious: Yes (Death)
  Sender: FDA-Public Use
  Company Number: 200510266BYL

PATIENT
  Age: 70 Year
  Sex: Male

DRUGS (3)
  1. CIPROXAN-I.V. 300 (CIPROFLOXACIN LACTATE) [Suspect]
     Dosage: 300 MG, TID, INTRAVENOUS
     Route: 042
     Dates: start: 20050418
  2. MAXIPIME [Suspect]
     Dosage: 2 G, TOTAL DAILY, INTRAVENOUS
     Route: 042
     Dates: start: 20050415, end: 20050418
  3. GEMZAR [Suspect]
     Dosage: INTRAVENOUS DRIP
     Route: 041
     Dates: start: 20050418

REACTIONS (3)
  - DISSEMINATED INTRAVASCULAR COAGULATION [None]
  - DYSPNOEA [None]
  - LUNG DISORDER [None]
